FAERS Safety Report 5195276-X (Version None)
Quarter: 2006Q4

REPORT INFORMATION
  Report Type: 
  Country: None (occurrence: None)
  Receive Date: 20061229
  Receipt Date: 20061127
  Transmission Date: 20070319
  Serious: Yes (Life-Threatening, Hospitalization)
  Sender: FDA-Public Use
  Company Number: DE-PFIZER INC-2006146874

PATIENT
  Sex: Female
  Weight: 72 kg

DRUGS (2)
  1. METHYLPREDNISOLONE [Suspect]
     Indication: MULTIPLE SCLEROSIS
     Route: 042
     Dates: start: 20061110, end: 20061112
  2. IBUPROFEN [Concomitant]

REACTIONS (1)
  - SINOATRIAL BLOCK [None]
